FAERS Safety Report 9382807 (Version 2)
Quarter: 2013Q3

REPORT INFORMATION
  Report Type: Spontaneous
  Country: AU (occurrence: AU)
  Receive Date: 20130703
  Receipt Date: 20130716
  Transmission Date: 20140515
  Serious: Yes (Hospitalization, Other)
  Sender: FDA-Public Use
  Company Number: AU-B.I. PHARMACEUTICALS,INC./RIDGEFIELD-2013-AU-00786AU

PATIENT
  Age: 61 Year
  Sex: Male
  Weight: 88 kg

DRUGS (12)
  1. PRADAXA [Suspect]
     Indication: ATRIAL FIBRILLATION
     Dosage: 300 MG
     Dates: start: 20120110, end: 20120215
  2. ATENOLOL [Concomitant]
     Dosage: 50 MG
     Route: 048
  3. DIABEX [Concomitant]
     Dosage: 500 MG
     Route: 048
  4. EPILIM [Concomitant]
     Dosage: 1400 MG
     Route: 048
  5. KEFLEX [Concomitant]
     Dosage: 1500 MG
     Route: 048
  6. KEPPRA [Concomitant]
     Dosage: 500 MG
     Route: 048
  7. LIPITOR [Concomitant]
     Dosage: 20 MG
     Route: 048
  8. LISINOPRIL [Concomitant]
     Dosage: 5 MG
     Route: 048
  9. PANADEINE FORTE [Concomitant]
     Dosage: 500MG/30MG
     Route: 048
  10. SOLARAZE [Concomitant]
     Dosage: 3%
     Route: 061
  11. TEMAZE [Concomitant]
     Dosage: 10 MG
     Route: 048
  12. VENTOLIN [Concomitant]
     Dosage: 100 MCG/DOSE
     Route: 055

REACTIONS (2)
  - Gastrointestinal carcinoma [Recovered/Resolved]
  - Rectal haemorrhage [Recovered/Resolved]
